FAERS Safety Report 5592725-X (Version None)
Quarter: 2007Q4

REPORT INFORMATION
  Report Type: 
  Country: None (occurrence: None)
  Receive Date: 20071217
  Receipt Date: 20071018
  Transmission Date: 20080405
  Serious: No
  Sender: FDA-Public Use
  Company Number: BDI-010387

PATIENT
  Age: 52 Year
  Sex: Female
  Weight: 81 kg

DRUGS (7)
  1. MULTIHANCE [Suspect]
     Indication: ACOUSTIC NEUROMA
     Dosage: 7 ML ONCE IV
     Route: 042
     Dates: start: 20071017, end: 20071017
  2. MULTIHANCE [Suspect]
     Indication: NUCLEAR MAGNETIC RESONANCE IMAGING BRAIN
     Dosage: 7 ML ONCE IV
     Route: 042
     Dates: start: 20071017, end: 20071017
  3. MULTIHANCE [Suspect]
     Indication: VERTIGO
     Dosage: 7 ML ONCE IV
     Route: 042
     Dates: start: 20071017, end: 20071017
  4. LEXAPRO [Concomitant]
  5. LEVAQUIN [Concomitant]
  6. SPIRONOLACTONE [Concomitant]
  7. TOPROL-XL [Concomitant]

REACTIONS (1)
  - VOMITING [None]
